FAERS Safety Report 10349708 (Version 5)
Quarter: 2016Q1

REPORT INFORMATION
  Report Type: Spontaneous
  Country: VE (occurrence: VE)
  Receive Date: 20140730
  Receipt Date: 20160301
  Transmission Date: 20160525
  Serious: Yes (Hospitalization, Other)
  Sender: FDA-Public Use
  Company Number: PHHY2014VE091760

PATIENT
  Age: 15 Year
  Sex: Female

DRUGS (15)
  1. DULCOLAX NOS [Concomitant]
     Active Substance: BISACODYL OR DOCUSATE SODIUM
     Indication: CONSTIPATION
     Dosage: UNK UKN, UNK
     Route: 065
  2. MACRODANTIN [Concomitant]
     Active Substance: NITROFURANTOIN
     Indication: NEUROGENIC BLADDER
     Dosage: 100 MG, QD
     Route: 065
  3. CLONAZEPAM. [Concomitant]
     Active Substance: CLONAZEPAM
     Indication: SEIZURE
     Dosage: 2 MG, QD
     Route: 065
  4. OMEPRAZOLE. [Concomitant]
     Active Substance: OMEPRAZOLE
     Indication: PROPHYLAXIS
     Dosage: 20 MG, QD
     Route: 065
  5. TRILEPTAL [Suspect]
     Active Substance: OXCARBAZEPINE
     Indication: SEIZURE
     Dosage: 1200 MG, QD
     Route: 048
  6. TRILEPTAL [Suspect]
     Active Substance: OXCARBAZEPINE
     Indication: CEREBRAL DISORDER
     Dosage: 1350 MG, QD
     Route: 048
     Dates: start: 2009, end: 2014
  7. MILAX [Concomitant]
     Indication: CONSTIPATION
     Dosage: UNK UKN, UNK
     Route: 065
  8. KEPPRA [Suspect]
     Active Substance: LEVETIRACETAM
     Indication: SEIZURE
     Dosage: 500 MG, QD
     Route: 065
     Dates: start: 2014
  9. CLONAC [Concomitant]
     Active Substance: DICLOFENAC SODIUM
     Indication: SEIZURE
     Dosage: 0.5 DF TID (HALF TABLET OF 2 MG IN THE MORNING, HALF TABLET AT NOON AND HALF TABLET AT NIGHT)
     Route: 048
  10. B COMPLEX B12 [Concomitant]
     Indication: PRODUCT USED FOR UNKNOWN INDICATION
     Route: 065
  11. LAMICTAL [Suspect]
     Active Substance: LAMOTRIGINE
     Indication: SEIZURE
     Route: 065
  12. LORATADINE. [Concomitant]
     Active Substance: LORATADINE
     Indication: ADENOIDAL DISORDER
     Dosage: UNK UKN, UNK
     Route: 048
  13. BUDENA [Concomitant]
     Indication: PRODUCT USED FOR UNKNOWN INDICATION
     Route: 065
  14. TRILEPTAL [Suspect]
     Active Substance: OXCARBAZEPINE
     Dosage: UNK UKN, UNK (PATIENT^S PHYSICIAN DECREASED THE DOSE)
     Route: 065
     Dates: start: 2014
  15. MACRODANTIN [Concomitant]
     Active Substance: NITROFURANTOIN
     Indication: BLADDER DISORDER

REACTIONS (8)
  - Menstruation irregular [Recovering/Resolving]
  - Rib deformity [Unknown]
  - Pelvic pain [Recovered/Resolved]
  - Ovarian dysgerminoma stage unspecified [Recovered/Resolved]
  - Scoliosis [Unknown]
  - Spinal column injury [Unknown]
  - Seizure [Recovered/Resolved]
  - Dyskinesia [Recovered/Resolved]

NARRATIVE: CASE EVENT DATE: 201311
